FAERS Safety Report 11055390 (Version 1)
Quarter: 2015Q2

REPORT INFORMATION
  Report Type: Spontaneous
  Country: US (occurrence: None)
  Receive Date: 20150421
  Receipt Date: 20150421
  Transmission Date: 20150821
  Serious: Yes (Other)
  Sender: FDA-Public Use
  Company Number: None

PATIENT
  Age: 63 Year
  Sex: Female
  Weight: 77.57 kg

DRUGS (14)
  1. NEXIUM [Concomitant]
     Active Substance: ESOMEPRAZOLE MAGNESIUM
  2. CELEBREX [Concomitant]
     Active Substance: CELECOXIB
  3. MAGNESIUM/ZINC [Concomitant]
     Active Substance: MAGNESIUM OXIDE\ZINC
  4. VITAMIN B12 [Concomitant]
     Active Substance: CYANOCOBALAMIN
  5. MELATONIN [Concomitant]
     Active Substance: MELATONIN
  6. ALPRAZOLAM. [Concomitant]
     Active Substance: ALPRAZOLAM
  7. ESOMEPRAZOLE DR 40MG CAP (GENERIC FOR NEXIUM) [Suspect]
     Active Substance: ESOMEPRAZOLE
     Indication: GASTROOESOPHAGEAL REFLUX DISEASE
     Dosage: 1 CAPSULE DAILY 1 DAILY BY MOUTH
     Route: 048
     Dates: start: 20150313, end: 20150316
  8. XANAX [Concomitant]
     Active Substance: ALPRAZOLAM
  9. CLONODINE [Concomitant]
  10. CALCIUM/D [Concomitant]
  11. ASPIRIN. [Concomitant]
     Active Substance: ASPIRIN
  12. NORVASC [Concomitant]
     Active Substance: AMLODIPINE BESYLATE
  13. FIBER [Concomitant]
     Active Substance: PSYLLIUM HUSK
  14. CELECOXIB. [Concomitant]
     Active Substance: CELECOXIB

REACTIONS (7)
  - Chills [None]
  - Feeling abnormal [None]
  - Hyperhidrosis [None]
  - Blood pressure fluctuation [None]
  - Confusional state [None]
  - Drug ineffective [None]
  - Product substitution issue [None]

NARRATIVE: CASE EVENT DATE: 20150313
